FAERS Safety Report 24294639 (Version 1)
Quarter: 2024Q3

REPORT INFORMATION
  Report Type: Report from Study
  Country: MX (occurrence: MX)
  Receive Date: 20240906
  Receipt Date: 20240906
  Transmission Date: 20241017
  Serious: Yes (Other)
  Sender: JOHNSON AND JOHNSON
  Company Number: MX-JNJFOC-20240908021

PATIENT

DRUGS (12)
  1. SPORANOX [Suspect]
     Active Substance: ITRACONAZOLE
     Indication: Prophylaxis
     Route: 065
  2. FLUCONAZOLE [Suspect]
     Active Substance: FLUCONAZOLE
     Indication: Prophylaxis
     Route: 065
  3. CIPROFLOXACIN [Suspect]
     Active Substance: CIPROFLOXACIN
     Indication: Prophylaxis
     Route: 065
  4. ACYCLOVIR [Suspect]
     Active Substance: ACYCLOVIR
     Indication: Prophylaxis
     Route: 065
  5. CYCLOPHOSPHAMIDE [Suspect]
     Active Substance: CYCLOPHOSPHAMIDE
     Indication: Prophylaxis
     Route: 065
  6. VINCRISTINE [Suspect]
     Active Substance: VINCRISTINE
     Indication: Prophylaxis
     Route: 065
  7. DOXORUBICIN [Suspect]
     Active Substance: DOXORUBICIN
     Indication: Prophylaxis
     Route: 065
  8. DEXAMETHASONE [Suspect]
     Active Substance: DEXAMETHASONE
     Indication: Prophylaxis
     Route: 065
  9. METHOTREXATE [Suspect]
     Active Substance: METHOTREXATE
     Indication: Prophylaxis
     Route: 065
  10. CYTARABINE [Suspect]
     Active Substance: CYTARABINE
     Indication: Prophylaxis
     Route: 065
  11. RITUXIMAB [Concomitant]
     Active Substance: RITUXIMAB
  12. IMATINIB [Concomitant]
     Active Substance: IMATINIB

REACTIONS (1)
  - Febrile neutropenia [Unknown]
